FAERS Safety Report 9613185 (Version 1)
Quarter: 2013Q4

REPORT INFORMATION
  Report Type: Spontaneous
  Country: TW (occurrence: TW)
  Receive Date: 20131010
  Receipt Date: 20131010
  Transmission Date: 20140711
  Serious: Yes (Other)
  Sender: FDA-Public Use
  Company Number: TW-JHP PHARMACEUTICALS, LLC-JHP201300601

PATIENT
  Age: 20 Year
  Sex: Female

DRUGS (1)
  1. KETALAR [Suspect]
     Indication: DRUG ABUSE
     Dosage: 2-5 GRAMS/DAY BY NASAL INSUFFLATION
     Route: 050

REACTIONS (2)
  - Renal infarct [Not Recovered/Not Resolved]
  - Cystitis noninfective [Not Recovered/Not Resolved]
